FAERS Safety Report 6102154-8 (Version None)
Quarter: 2009Q1

REPORT INFORMATION
  Report Type: 
  Country: None (occurrence: None)
  Receive Date: 20090304
  Receipt Date: 20090227
  Transmission Date: 20090719
  Serious: Yes (Hospitalization)
  Sender: FDA-Public Use
  Company Number: AU-MERCK-0903AUS00007

PATIENT
  Age: 68 Year
  Sex: Female
  Weight: 59 kg

DRUGS (12)
  1. CANCIDAS [Suspect]
     Route: 065
     Dates: start: 20080910, end: 20080910
  2. CANCIDAS [Suspect]
     Route: 065
     Dates: start: 20080911, end: 20080916
  3. AMPHOTERICIN B AND L-(ALPHA)-DIMYRISTOYLPHOSPHATIDYLCHOLINE AND L-(ALP [Suspect]
     Indication: PROPHYLAXIS
     Route: 065
     Dates: start: 20080829, end: 20080910
  4. MEROPENEM [Suspect]
     Route: 065
     Dates: start: 20080907, end: 20080910
  5. PREDNISOLONE [Suspect]
     Route: 065
     Dates: start: 20080908, end: 20080909
  6. VANCOMYCIN HYDROCHLORIDE [Suspect]
     Route: 065
     Dates: start: 20080906, end: 20080907
  7. CALTRATE [Concomitant]
     Route: 065
  8. CYCLIZINE [Concomitant]
     Route: 065
  9. LASIX [Concomitant]
     Route: 065
  10. LORAZEPAM [Concomitant]
     Route: 065
  11. MAGMIN [Concomitant]
     Route: 065
  12. SODIUM CHLORIDE [Concomitant]
     Route: 065

REACTIONS (6)
  - ACUTE PULMONARY OEDEMA [None]
  - AGRANULOCYTOSIS [None]
  - DYSPNOEA [None]
  - FEBRILE NEUTROPENIA [None]
  - PYREXIA [None]
  - TACHYCARDIA [None]
